FAERS Safety Report 9703688 (Version 1)
Quarter: 2013Q4

REPORT INFORMATION
  Report Type: Spontaneous
  Country: US (occurrence: None)
  Receive Date: 20131121
  Receipt Date: 20131121
  Transmission Date: 20140711
  Serious: Yes (Other)
  Sender: FDA-Public Use
  Company Number: None

PATIENT
  Age: 55 Day
  Sex: Female

DRUGS (2)
  1. HUMALOG KWIKPEN [Suspect]
     Indication: TYPE 1 DIABETES MELLITUS
     Route: 058
     Dates: start: 20131120
  2. LONG ACTING INSULIN [Concomitant]

REACTIONS (3)
  - Syncope [None]
  - Blood glucose increased [None]
  - Medical device complication [None]
